FAERS Safety Report 24937213 (Version 1)
Quarter: 2025Q1

REPORT INFORMATION
  Report Type: Spontaneous
  Country: CA (occurrence: CA)
  Receive Date: 20250206
  Receipt Date: 20250206
  Transmission Date: 20250409
  Serious: Yes (Other)
  Sender: CELLTRION
  Company Number: CA-PFIZER INC-202400288109

PATIENT

DRUGS (6)
  1. INFLECTRA [Suspect]
     Active Substance: INFLIXIMAB-DYYB
     Indication: Colitis ulcerative
     Route: 042
     Dates: start: 20241024, end: 20241024
  2. INFLECTRA [Suspect]
     Active Substance: INFLIXIMAB-DYYB
     Route: 042
     Dates: start: 20241217
  3. AZATHIOPRINE [Concomitant]
     Active Substance: AZATHIOPRINE
     Route: 065
     Dates: start: 202007
  4. BETADERM [Concomitant]
     Active Substance: BETAMETHASONE VALERATE
     Indication: Eczema
     Route: 061
  5. MESALAMINE [Concomitant]
     Active Substance: MESALAMINE
     Indication: Colitis
     Route: 048
  6. PAIN RELIEVER (ACETAMINOPHEN) [Concomitant]
     Active Substance: ACETAMINOPHEN
     Indication: Abdominal pain
     Route: 065

REACTIONS (3)
  - Weight increased [Unknown]
  - Off label use [Unknown]
  - Intentional product use issue [Unknown]

NARRATIVE: CASE EVENT DATE: 20241024
